FAERS Safety Report 25452872 (Version 3)
Quarter: 2025Q3

REPORT INFORMATION
  Report Type: Report from Study
  Country: EU (occurrence: EU)
  Receive Date: 20250618
  Receipt Date: 20250810
  Transmission Date: 20251021
  Serious: Yes (Other)
  Sender: ALEXION PHARMACEUTICALS
  Company Number: EU-ASTRAZENECA-202506GLO011089IT

PATIENT
  Sex: Female
  Weight: 43 kg

DRUGS (2)
  1. ANIFROLUMAB [Suspect]
     Active Substance: ANIFROLUMAB
     Indication: Systemic lupus erythematosus
     Dates: start: 20241120, end: 20250321
  2. ANIFROLUMAB [Suspect]
     Active Substance: ANIFROLUMAB
     Dates: start: 20250613, end: 20250613

REACTIONS (1)
  - Breast abscess [Recovered/Resolved]

NARRATIVE: CASE EVENT DATE: 20250423
